FAERS Safety Report 12211820 (Version 1)
Quarter: 2016Q1

REPORT INFORMATION
  Report Type: Spontaneous
  Country: US (occurrence: US)
  Receive Date: 20160325
  Receipt Date: 20160325
  Transmission Date: 20160526
  Serious: Yes (Hospitalization)
  Sender: FDA-Public Use
  Company Number: US-FRI-1000083394

PATIENT
  Sex: Male

DRUGS (1)
  1. VIIBRYD [Suspect]
     Active Substance: VILAZODONE HYDROCHLORIDE
     Dates: start: 201504

REACTIONS (3)
  - Psychotic disorder [Unknown]
  - Paranoia [Unknown]
  - Anxiety [Unknown]

NARRATIVE: CASE EVENT DATE: 201505
